FAERS Safety Report 5870598-5 (Version None)
Quarter: 2008Q3

REPORT INFORMATION
  Report Type: 
  Country: None (occurrence: None)
  Receive Date: 20080904
  Receipt Date: 20080828
  Transmission Date: 20090109
  Serious: Yes (Death)
  Sender: FDA-Public Use
  Company Number: A0745981A

PATIENT
  Age: 74 Year
  Sex: Male
  Weight: 45 kg

DRUGS (3)
  1. SERETIDE [Suspect]
     Indication: CHRONIC OBSTRUCTIVE PULMONARY DISEASE
     Dates: start: 20040801, end: 20071101
  2. AMINOPHYLLINE [Concomitant]
     Dosage: 1TAB THREE TIMES PER DAY
     Dates: start: 20070901, end: 20071201
  3. PREDNISONE [Concomitant]
     Dosage: 1TAB PER DAY
     Dates: start: 20050801, end: 20071201

REACTIONS (1)
  - DEATH [None]
